FAERS Safety Report 9798735 (Version 1)
Quarter: 2014Q1

REPORT INFORMATION
  Report Type: Spontaneous
  Country: US (occurrence: US)
  Receive Date: 20140106
  Receipt Date: 20140106
  Transmission Date: 20141002
  Serious: No
  Sender: FDA-Public Use
  Company Number: US-GILEAD-2010-0029973

PATIENT
  Sex: Male
  Weight: 72.57 kg

DRUGS (21)
  1. LETAIRIS [Suspect]
     Indication: PULMONARY ARTERIAL HYPERTENSION
     Route: 048
     Dates: start: 20100127
  2. MECLIZINE [Concomitant]
  3. ASTEPRO [Concomitant]
  4. ZYRTEC [Concomitant]
  5. FLOLAN [Concomitant]
  6. CALTRATE W/VIT D [Concomitant]
  7. PEPCID [Concomitant]
  8. TYLENOL EX-STR [Concomitant]
  9. FEXOFENADINE [Concomitant]
  10. POTASSIUM CHLORIDE [Concomitant]
  11. LUXIQ [Concomitant]
  12. FUROSEMIDE [Concomitant]
  13. FLUTICASONE [Concomitant]
  14. OXYGEN [Concomitant]
  15. POLYSPORIN [Concomitant]
  16. FOLIC ACID [Concomitant]
  17. ALPRAZOLAM [Concomitant]
  18. MULTIVITAMIN [Concomitant]
  19. LOPERAMIDE [Concomitant]
  20. BISACODYL [Concomitant]
  21. WARFARIN [Concomitant]

REACTIONS (2)
  - Malaise [Unknown]
  - Abdominal discomfort [Unknown]
